FAERS Safety Report 5330325-7 (Version None)
Quarter: 2007Q2

REPORT INFORMATION
  Report Type: 
  Country: None (occurrence: None)
  Receive Date: 20070521
  Receipt Date: 20070509
  Transmission Date: 20071010
  Serious: Yes (Hospitalization, Other)
  Sender: FDA-Public Use
  Company Number: FR-PFIZER INC-2004019671

PATIENT
  Age: 68 Year
  Sex: Male

DRUGS (7)
  1. ZOXAN LP [Suspect]
     Indication: PROSTATITIS
     Dosage: FREQ:ONCE DIALY
     Route: 048
     Dates: start: 20040202, end: 20040213
  2. BACTRIM [Suspect]
     Indication: PROSTATITIS
     Dosage: FREQ:ONCE DAILY
     Route: 030
     Dates: start: 20040202, end: 20040213
  3. SPIRONOLACTONE [Concomitant]
  4. MEDIATENSYL [Concomitant]
     Route: 048
  5. VALIUM [Concomitant]
     Route: 048
  6. SERESTA [Concomitant]
  7. DETENSIEL [Concomitant]
     Indication: PROSTATITIS

REACTIONS (1)
  - STEVENS-JOHNSON SYNDROME [None]
